FAERS Safety Report 11393330 (Version 1)
Quarter: 2015Q3

REPORT INFORMATION
  Report Type: Spontaneous
  Country: US (occurrence: US)
  Receive Date: 20150818
  Receipt Date: 20150818
  Transmission Date: 20151125
  Serious: Yes (Other)
  Sender: FDA-Public Use
  Company Number: US-BRISTOL-MYERS SQUIBB COMPANY-BMS-2015-053624

PATIENT
  Age: 50 Year
  Sex: Female

DRUGS (2)
  1. ABILIFY [Suspect]
     Active Substance: ARIPIPRAZOLE
     Indication: SCHIZOPHRENIA, PARANOID TYPE
     Dosage: UNK
     Route: 065
  2. KLONOPIN [Concomitant]
     Active Substance: CLONAZEPAM
     Indication: PRODUCT USED FOR UNKNOWN INDICATION
     Route: 065

REACTIONS (4)
  - Periodontal disease [Unknown]
  - Type 2 diabetes mellitus [Unknown]
  - Gingivitis [Unknown]
  - Tooth abscess [Unknown]
